FAERS Safety Report 17349193 (Version 8)
Quarter: 2021Q1

REPORT INFORMATION
  Report Type: Report from Study
  Country: SK (occurrence: SK)
  Receive Date: 20200130
  Receipt Date: 20210201
  Transmission Date: 20210419
  Serious: Yes (Death, Life-Threatening, Hospitalization)
  Sender: FDA-Public Use
  Company Number: NVSC2020SK014539

PATIENT
  Age: 76 Year
  Sex: Female
  Weight: 65 kg

DRUGS (52)
  1. BLINDED NAB PACLITAXEL [Suspect]
     Active Substance: PACLITAXEL
     Indication: NON-SMALL CELL LUNG CANCER
     Dosage: 200 MG, Q3W
     Route: 042
     Dates: start: 20191227, end: 20200120
  2. BLINDED CANAKINUMAB [Suspect]
     Active Substance: CANAKINUMAB
     Indication: NON-SMALL CELL LUNG CANCER
     Dosage: 830 MG, Q3W
     Route: 042
     Dates: start: 20191227, end: 20200120
  3. BLINDED CARBOPLATIN [Suspect]
     Active Substance: CARBOPLATIN
     Indication: NON-SMALL CELL LUNG CANCER
     Dosage: 830 MG, Q3W
     Route: 042
     Dates: start: 20191227, end: 20200120
  4. BLINDED PEMBROLIZUMAB [Suspect]
     Active Substance: PEMBROLIZUMAB
     Indication: NON-SMALL CELL LUNG CANCER
     Dosage: 830 MG, Q3W
     Route: 042
     Dates: start: 20191227, end: 20200120
  5. BLINDED ACZ885 [Suspect]
     Active Substance: CANAKINUMAB
     Indication: NON-SMALL CELL LUNG CANCER
     Dosage: 80 MG, Q3W
     Route: 042
     Dates: start: 20191227, end: 20200120
  6. BLINDED NO TREATMENT RECEIVED [Suspect]
     Active Substance: INVESTIGATIONAL PRODUCT
     Indication: NON-SMALL CELL LUNG CANCER
     Dosage: 80 MG, Q3W
     Route: 042
     Dates: start: 20191227, end: 20200120
  7. REASEC [Concomitant]
     Active Substance: ATROPINE SULFATE\DIPHENOXYLATE HYDROCHLORIDE
     Indication: DIARRHOEA
     Dosage: UNK
     Route: 065
     Dates: start: 20200110, end: 20200113
  8. PROBIOTIC [Concomitant]
     Active Substance: PROBIOTICS NOS
     Indication: RENAL FAILURE
     Dosage: UNK
     Route: 065
     Dates: start: 20200114, end: 20200119
  9. NORMAL SALINE [Concomitant]
     Active Substance: SODIUM CHLORIDE
     Indication: HYPOTENSION
     Dosage: UNK
     Route: 065
     Dates: start: 20200109, end: 20200109
  10. HELICID [Concomitant]
     Active Substance: OMEPRAZOLE
     Indication: PROPHYLAXIS
     Dosage: UNK
     Route: 065
     Dates: start: 20200115, end: 20200119
  11. BLINDED NO TREATMENT RECEIVED [Suspect]
     Active Substance: INVESTIGATIONAL PRODUCT
     Indication: NON-SMALL CELL LUNG CANCER
     Dosage: 200 MG, Q3W
     Route: 042
     Dates: start: 20191227, end: 20200120
  12. PLACEBO [Suspect]
     Active Substance: UNSPECIFIED INGREDIENT
     Indication: NON-SMALL CELL LUNG CANCER
     Dosage: 830 MG, Q3W
     Route: 042
     Dates: start: 20191227, end: 20200120
  13. BLINDED CARBOPLATIN [Suspect]
     Active Substance: CARBOPLATIN
     Indication: NON-SMALL CELL LUNG CANCER
     Dosage: 80 MG, Q3W
     Route: 042
     Dates: start: 20191227, end: 20200120
  14. BLINDED NAB PACLITAXEL [Suspect]
     Active Substance: PACLITAXEL
     Indication: NON-SMALL CELL LUNG CANCER
     Dosage: 80 MG, Q3W
     Route: 042
     Dates: start: 20191227, end: 20200120
  15. PREDNISON [Suspect]
     Active Substance: PREDNISONE
     Indication: RENAL FAILURE
     Dosage: UNK
     Route: 065
     Dates: start: 20200115, end: 20200119
  16. FRAXIPARIN [Concomitant]
     Active Substance: NADROPARIN CALCIUM
     Indication: THROMBOSIS
     Dosage: UNK
     Route: 065
     Dates: start: 20191009, end: 20200120
  17. CONTROLOC [Concomitant]
     Active Substance: PANTOPRAZOLE SODIUM
     Indication: PROPHYLAXIS
     Dosage: UNK
     Route: 065
     Dates: start: 20200119
  18. BLINDED CANAKINUMAB [Suspect]
     Active Substance: CANAKINUMAB
     Indication: NON-SMALL CELL LUNG CANCER
     Dosage: 200 MG, Q3W
     Route: 042
     Dates: start: 20191227, end: 20200120
  19. BLINDED PEMBROLIZUMAB [Suspect]
     Active Substance: PEMBROLIZUMAB
     Indication: NON-SMALL CELL LUNG CANCER
     Dosage: 200 MG, Q3W
     Route: 042
     Dates: start: 20191227, end: 20200120
  20. PLACEBO [Suspect]
     Active Substance: UNSPECIFIED INGREDIENT
     Indication: NON-SMALL CELL LUNG CANCER
     Dosage: 200 MG, Q3W
     Route: 042
     Dates: start: 20191227, end: 20200120
  21. BLINDED NAB PACLITAXEL [Suspect]
     Active Substance: PACLITAXEL
     Indication: NON-SMALL CELL LUNG CANCER
     Dosage: 830 MG, Q3W
     Route: 042
     Dates: start: 20191227, end: 20200120
  22. BLINDED NO TREATMENT RECEIVED [Suspect]
     Active Substance: INVESTIGATIONAL PRODUCT
     Indication: NON-SMALL CELL LUNG CANCER
     Dosage: 830 MG, Q3W
     Route: 042
     Dates: start: 20191227, end: 20200120
  23. BLINDED PEMETREXED [Suspect]
     Active Substance: PEMETREXED
     Indication: NON-SMALL CELL LUNG CANCER
     Dosage: 80 MG, Q3W
     Route: 042
     Dates: start: 20191227, end: 20200120
  24. PIOGLITAZON [Concomitant]
     Active Substance: PIOGLITAZONE HYDROCHLORIDE
     Indication: DIABETES MELLITUS
     Dosage: UNK
     Route: 065
     Dates: start: 20010101, end: 20200119
  25. BLINDED PACLITAXEL [Suspect]
     Active Substance: PACLITAXEL
     Indication: NON-SMALL CELL LUNG CANCER
     Dosage: 200 MG, Q3W
     Route: 042
     Dates: start: 20191227, end: 20200120
  26. BLINDED PEMETREXED [Suspect]
     Active Substance: PEMETREXED
     Indication: NON-SMALL CELL LUNG CANCER
     Dosage: 200 MG, Q3W
     Route: 042
     Dates: start: 20191227, end: 20200120
  27. BLINDED CISPLATIN [Suspect]
     Active Substance: CISPLATIN
     Indication: NON-SMALL CELL LUNG CANCER
     Dosage: 830 MG, Q3W
     Route: 042
     Dates: start: 20191227, end: 20200120
  28. BLINDED PACLITAXEL [Suspect]
     Active Substance: PACLITAXEL
     Indication: NON-SMALL CELL LUNG CANCER
     Dosage: 80 MG, Q3W
     Route: 042
     Dates: start: 20191227, end: 20200120
  29. BLINDED PEMBROLIZUMAB [Suspect]
     Active Substance: PEMBROLIZUMAB
     Indication: NON-SMALL CELL LUNG CANCER
     Dosage: 80 MG, Q3W
     Route: 042
     Dates: start: 20191227, end: 20200120
  30. BLINDED CARBOPLATIN [Suspect]
     Active Substance: CARBOPLATIN
     Indication: NON-SMALL CELL LUNG CANCER
     Dosage: 200 MG, Q3W
     Route: 042
     Dates: start: 20191227, end: 20200120
  31. BLINDED PEMBROLIZUMAB [Suspect]
     Active Substance: PEMBROLIZUMAB
     Indication: NON-SMALL CELL LUNG CANCER
     Dosage: 80 MG, Q3W
     Route: 042
     Dates: start: 20191227, end: 20200120
  32. KALDYUM [Concomitant]
     Active Substance: POTASSIUM CHLORIDE
     Indication: RENAL FAILURE
     Dosage: UNK
     Route: 065
     Dates: start: 20200114, end: 20200119
  33. VASOCARDIN [Concomitant]
     Active Substance: METOPROLOL
     Indication: HYPERTENSION
     Dosage: UNK
     Route: 065
     Dates: start: 20200117, end: 20200119
  34. BLINDED PEMBROLIZUMAB [Suspect]
     Active Substance: PEMBROLIZUMAB
     Indication: NON-SMALL CELL LUNG CANCER
     Dosage: 200 MG, Q3W
     Route: 042
     Dates: start: 20191227, end: 20200120
  35. INSULIN [Concomitant]
     Active Substance: INSULIN NOS
     Indication: DIABETES MELLITUS
     Dosage: UNK
     Route: 065
     Dates: start: 20200115
  36. MILURIT [Concomitant]
     Active Substance: ALLOPURINOL
     Indication: PROPHYLAXIS
     Dosage: UNK
     Route: 065
     Dates: start: 20090101, end: 20200119
  37. BLINDED ACZ885 [Suspect]
     Active Substance: CANAKINUMAB
     Indication: NON-SMALL CELL LUNG CANCER
     Dosage: 200 MG, Q3W
     Route: 042
     Dates: start: 20191227, end: 20200120
  38. BLINDED CANAKINUMAB [Suspect]
     Active Substance: CANAKINUMAB
     Indication: NON-SMALL CELL LUNG CANCER
     Dosage: 80 MG, Q3W
     Route: 042
     Dates: start: 20191227, end: 20200120
  39. NORMAL SALINE [Concomitant]
     Active Substance: SODIUM CHLORIDE
     Indication: RENAL FAILURE
  40. ROSUCARD [Concomitant]
     Active Substance: ROSUVASTATIN CALCIUM
     Indication: HYPERLIPIDAEMIA
     Dosage: UNK
     Route: 065
     Dates: start: 20090101, end: 20200119
  41. GLUCOSE [Concomitant]
     Active Substance: DEXTROSE
     Indication: RENAL FAILURE
     Dosage: UNK
     Route: 065
     Dates: start: 20200114, end: 20200116
  42. CANAKINUMAB. [Suspect]
     Active Substance: CANAKINUMAB
     Indication: NON-SMALL CELL LUNG CANCER
     Dosage: UNK
     Route: 058
     Dates: start: 20191227, end: 20200120
  43. BLINDED CISPLATIN [Suspect]
     Active Substance: CISPLATIN
     Indication: NON-SMALL CELL LUNG CANCER
     Dosage: 200 MG, Q3W
     Route: 042
     Dates: start: 20191227, end: 20200120
  44. BLINDED ACZ885 [Suspect]
     Active Substance: CANAKINUMAB
     Indication: NON-SMALL CELL LUNG CANCER
     Dosage: 830 MG, Q3W
     Route: 042
     Dates: start: 20191227, end: 20200120
  45. BLINDED PACLITAXEL [Suspect]
     Active Substance: PACLITAXEL
     Indication: NON-SMALL CELL LUNG CANCER
     Dosage: 830 MG, Q3W
     Route: 042
     Dates: start: 20191227, end: 20200120
  46. BLINDED PEMBROLIZUMAB [Suspect]
     Active Substance: PEMBROLIZUMAB
     Indication: NON-SMALL CELL LUNG CANCER
     Dosage: 830 MG, Q3W
     Route: 042
     Dates: start: 20191227, end: 20200120
  47. BLINDED PEMETREXED [Suspect]
     Active Substance: PEMETREXED
     Indication: NON-SMALL CELL LUNG CANCER
     Dosage: 830 MG, Q3W
     Route: 042
     Dates: start: 20191227, end: 20200120
  48. BLINDED CISPLATIN [Suspect]
     Active Substance: CISPLATIN
     Indication: NON-SMALL CELL LUNG CANCER
     Dosage: 80 MG, Q3W
     Route: 042
     Dates: start: 20191227, end: 20200120
  49. PLACEBO [Suspect]
     Active Substance: UNSPECIFIED INGREDIENT
     Indication: NON-SMALL CELL LUNG CANCER
     Dosage: 80 MG, Q3W
     Route: 042
     Dates: start: 20191227, end: 20200120
  50. KALIUM CHLORATUM [Concomitant]
     Active Substance: POTASSIUM CHLORIDE
     Indication: RENAL FAILURE
     Dosage: UNK
     Route: 065
     Dates: start: 20200114, end: 20200120
  51. CALTRATE [Concomitant]
     Active Substance: CALCIUM CARBONATE
     Indication: RENAL FAILURE
     Dosage: UNK
     Route: 065
     Dates: start: 20200114, end: 20200119
  52. CALCIUM [Concomitant]
     Active Substance: CALCIUM
     Indication: RENAL FAILURE
     Dosage: UNK
     Route: 065
     Dates: start: 20200114, end: 20200119

REACTIONS (2)
  - Pneumonia [Not Recovered/Not Resolved]
  - Pneumonia [Fatal]

NARRATIVE: CASE EVENT DATE: 20200119
